FAERS Safety Report 4997932-2 (Version None)
Quarter: 2006Q2

REPORT INFORMATION
  Report Type: 
  Country: None (occurrence: None)
  Receive Date: 20060508
  Receipt Date: 20060426
  Transmission Date: 20061013
  Serious: Yes (Hospitalization)
  Sender: FDA-Public Use
  Company Number: 2006057363

PATIENT
  Age: 58 Year
  Sex: Female
  Weight: 99.7913 kg

DRUGS (9)
  1. CELEBREX [Suspect]
     Indication: ARTHRITIS
     Dosage: 400 MG (200 MG, 2 IN 1 D)
     Dates: start: 20020101
  2. ASPIRIN [Concomitant]
  3. CODEINE (CODEINE) [Concomitant]
  4. DARVOCET [Concomitant]
  5. PERCOCET [Concomitant]
  6. ACETAMINOPHEN [Concomitant]
  7. NITRO (GLYCERYL TRINITRATE) [Concomitant]
  8. PLAVIX [Concomitant]
  9. LIPITOR [Concomitant]

REACTIONS (6)
  - ANEURYSM [None]
  - ARTERIAL OCCLUSIVE DISEASE [None]
  - ASTHENIA [None]
  - BALANCE DISORDER [None]
  - MYOCARDIAL INFARCTION [None]
  - POST PROCEDURAL COMPLICATION [None]
